FAERS Safety Report 9516742 (Version 2)
Quarter: 2013Q4

REPORT INFORMATION
  Report Type: Spontaneous
  Country: US (occurrence: US)
  Receive Date: 20130911
  Receipt Date: 20131008
  Transmission Date: 20140711
  Serious: Yes (Other)
  Sender: FDA-Public Use
  Company Number: US-TEVA-431411USA

PATIENT
  Age: 34 Year
  Sex: Female
  Weight: 93.98 kg

DRUGS (2)
  1. PARAGARD 380A [Suspect]
     Indication: CONTRACEPTION
     Route: 015
     Dates: start: 20130627, end: 20130829
  2. ORTHO-TRY-CYCLEN [Concomitant]

REACTIONS (1)
  - Device dislocation [Recovered/Resolved]
